FAERS Safety Report 9132572 (Version 2)
Quarter: 2014Q2

REPORT INFORMATION
  Report Type: Report from Study
  Country: AT (occurrence: AT)
  Receive Date: 20130301
  Receipt Date: 20140529
  Transmission Date: 20141212
  Serious: Yes (Hospitalization)
  Sender: FDA-Public Use
  Company Number: AT-ROCHE-1083513

PATIENT
  Age: 50 Year
  Sex: Female
  Weight: 58 kg

DRUGS (19)
  1. TRASTUZUMAB EMTANSINE [Suspect]
     Indication: BREAST CANCER METASTATIC
     Route: 042
     Dates: start: 20110808
  2. BLINDED PERTUZUMAB [Suspect]
     Indication: BREAST CANCER METASTATIC
     Route: 042
     Dates: start: 20110808
  3. DIBONDRIN [Concomitant]
     Route: 065
     Dates: start: 20110808
  4. RANITIDIN [Concomitant]
     Route: 065
     Dates: start: 20110808
  5. KYTRIL [Concomitant]
     Route: 065
     Dates: start: 20110808
  6. DEXAMETHASON [Concomitant]
     Route: 065
     Dates: start: 20110808
  7. O2 4L [Concomitant]
     Indication: DYSPNOEA
     Dosage: 4 L/MIN
     Route: 065
     Dates: start: 20110808
  8. MEXALEN [Concomitant]
     Route: 065
     Dates: start: 20110809
  9. PASPERTIN [Concomitant]
     Indication: NAUSEA
     Route: 065
     Dates: start: 20110816
  10. PASPERTIN [Concomitant]
     Indication: VOMITING
  11. PANTOLOC [Concomitant]
     Route: 065
     Dates: start: 20110816
  12. HALCION [Concomitant]
     Route: 065
     Dates: start: 20110829
  13. PARACODIN [Concomitant]
     Route: 065
     Dates: start: 20110829
  14. PARKEMED [Concomitant]
     Route: 065
     Dates: start: 20110829
  15. MOLAXOLE [Concomitant]
     Route: 065
     Dates: start: 20111012
  16. XYZALL [Concomitant]
     Indication: SEASONAL ALLERGY
     Route: 065
     Dates: start: 20120416
  17. KALIORAL [Concomitant]
     Indication: HYPOKALAEMIA
     Route: 065
     Dates: start: 20120426
  18. LASIX [Concomitant]
     Indication: OEDEMA PERIPHERAL
     Route: 065
     Dates: start: 20120606
  19. FERRITIN [Concomitant]
     Indication: ANAEMIA
     Route: 065
     Dates: start: 20120625

REACTIONS (1)
  - Pneumonitis [Recovered/Resolved]
